FAERS Safety Report 4617125-8 (Version None)
Quarter: 2005Q1

REPORT INFORMATION
  Report Type: 
  Country: None (occurrence: None)
  Receive Date: 20050323
  Receipt Date: 20050316
  Transmission Date: 20050727
  Serious: Yes (Life-Threatening)
  Sender: FDA-Public Use
  Company Number: JP-ROCHE-399247

PATIENT
  Age: 34 Year
  Sex: Male

DRUGS (6)
  1. TAMIFLU [Suspect]
     Indication: INFLUENZA
     Route: 048
     Dates: start: 20050309
  2. VOLTAREN [Concomitant]
     Route: 048
  3. HUSCODE [Concomitant]
     Route: 048
  4. PL [Concomitant]
     Route: 048
  5. MARZULENE [Concomitant]
     Route: 048
  6. ALESION [Concomitant]
     Route: 048

REACTIONS (2)
  - FALL [None]
  - LOSS OF CONSCIOUSNESS [None]
